FAERS Safety Report 17114604 (Version 2)
Quarter: 2020Q1

REPORT INFORMATION
  Report Type: Spontaneous
  Country: US (occurrence: US)
  Receive Date: 20191205
  Receipt Date: 20200108
  Transmission Date: 20200409
  Serious: No
  Sender: FDA-Public Use
  Company Number: US-UNITED THERAPEUTICS-UNT-2019-020076

PATIENT
  Sex: Female
  Weight: 73.16 kg

DRUGS (1)
  1. REMODULIN [Suspect]
     Active Substance: TREPROSTINIL
     Indication: PULMONARY ARTERIAL HYPERTENSION
     Dosage: 0.077 ?G/KG, CONTINUING
     Route: 041
     Dates: start: 20190116

REACTIONS (8)
  - Flushing [Unknown]
  - Device leakage [Unknown]
  - Device physical property issue [Unknown]
  - Medical device site haemorrhage [Unknown]
  - Device issue [Unknown]
  - Product leakage [Unknown]
  - Device connection issue [Unknown]
  - Headache [Unknown]

NARRATIVE: CASE EVENT DATE: 2019
